APPROVED DRUG PRODUCT: ACARBOSE
Active Ingredient: ACARBOSE
Strength: 50MG
Dosage Form/Route: TABLET;ORAL
Application: A091053 | Product #002
Applicant: DASH PHARMACEUTICALS LLC
Approved: Jan 6, 2011 | RLD: No | RS: No | Type: DISCN